FAERS Safety Report 16299102 (Version 1)
Quarter: 2019Q2

REPORT INFORMATION
  Report Type: Spontaneous
  Country: US (occurrence: US)
  Receive Date: 20190510
  Receipt Date: 20190510
  Transmission Date: 20190711
  Serious: Yes (Hospitalization)
  Sender: FDA-Public Use
  Company Number: PHHY2019US103583

PATIENT
  Age: 48 Year
  Sex: Female

DRUGS (2)
  1. BIVALIRUDIN. [Suspect]
     Active Substance: BIVALIRUDIN
     Indication: DEEP VEIN THROMBOSIS
     Route: 065
  2. BIVALIRUDIN. [Suspect]
     Active Substance: BIVALIRUDIN
     Indication: PERIPHERAL ARTERY THROMBOSIS

REACTIONS (1)
  - Gangrene [Unknown]
